FAERS Safety Report 20855927 (Version 2)
Quarter: 2022Q4

REPORT INFORMATION
  Report Type: Spontaneous
  Country: FR (occurrence: FR)
  Receive Date: 20220520
  Receipt Date: 20221213
  Transmission Date: 20230113
  Serious: Yes (Death, Other)
  Sender: FDA-Public Use
  Company Number: FR-GLAXOSMITHKLINE-FR2022EME080924

PATIENT

DRUGS (16)
  1. BELANTAMAB MAFODOTIN [Suspect]
     Active Substance: BELANTAMAB MAFODOTIN
     Indication: Plasma cell myeloma
     Dosage: 2.5 MG/KG, CYC (ONCE OR EVERY 3 WEEKS)
     Route: 042
     Dates: start: 20210301, end: 20210413
  2. BELANTAMAB MAFODOTIN [Suspect]
     Active Substance: BELANTAMAB MAFODOTIN
     Dosage: 2.5 MG/KG, CYC
     Route: 042
     Dates: start: 20210322, end: 20210413
  3. VELCADE [Concomitant]
     Active Substance: BORTEZOMIB
     Indication: Product used for unknown indication
     Dosage: UNK
     Dates: start: 20150203
  4. VELCADE [Concomitant]
     Active Substance: BORTEZOMIB
     Dosage: UNK
     Dates: start: 20170502
  5. CYCLOPHOSPHAMIDE [Concomitant]
     Active Substance: CYCLOPHOSPHAMIDE
     Indication: Product used for unknown indication
     Dosage: UNK
     Dates: start: 20150203
  6. DEXAMETHASONE [Concomitant]
     Active Substance: DEXAMETHASONE
     Indication: Product used for unknown indication
     Dosage: UNK
     Dates: start: 20150203
  7. DEXAMETHASONE [Concomitant]
     Active Substance: DEXAMETHASONE
     Dosage: UNK
     Dates: start: 20170502
  8. DEXAMETHASONE [Concomitant]
     Active Substance: DEXAMETHASONE
     Dosage: UNK
     Dates: start: 201804
  9. DEXAMETHASONE [Concomitant]
     Active Substance: DEXAMETHASONE
     Dosage: UNK
     Dates: start: 201812
  10. REVLIMID [Concomitant]
     Active Substance: LENALIDOMIDE
     Indication: Product used for unknown indication
     Dosage: UNK
     Dates: start: 20170502
  11. DARZALEX [Concomitant]
     Active Substance: DARATUMUMAB
     Indication: Product used for unknown indication
     Dosage: UNK
     Dates: start: 201804
  12. POMALIDOMIDE [Concomitant]
     Active Substance: POMALIDOMIDE
     Indication: Product used for unknown indication
     Dosage: UNK
     Dates: start: 201804
  13. KYPROLIS [Concomitant]
     Active Substance: CARFILZOMIB
     Indication: Product used for unknown indication
     Dosage: UNK
     Dates: start: 201812
  14. VENETOCLAX [Concomitant]
     Active Substance: VENETOCLAX
     Indication: Product used for unknown indication
     Dosage: UNK
     Dates: start: 201812
  15. ALKERAN [Concomitant]
     Active Substance: MELPHALAN
     Indication: Product used for unknown indication
     Dosage: UNK
     Dates: start: 20200915
  16. THALIDOMIDE [Concomitant]
     Active Substance: THALIDOMIDE
     Indication: Product used for unknown indication
     Dosage: UNK
     Dates: start: 20200915

REACTIONS (7)
  - Death [Fatal]
  - Glaucoma [Unknown]
  - Asthenia [Unknown]
  - Keratitis [Unknown]
  - Orthopnoea [Unknown]
  - Cough [Unknown]
  - Pruritus [Unknown]

NARRATIVE: CASE EVENT DATE: 20210301
